FAERS Safety Report 20902769 (Version 1)
Quarter: 2022Q2

REPORT INFORMATION
  Report Type: Spontaneous
  Country: US (occurrence: US)
  Receive Date: 20220601
  Receipt Date: 20220601
  Transmission Date: 20220720
  Serious: Yes (Other)
  Sender: FDA-Public Use
  Company Number: US-drreddys-LIT/USA/22/0150671

PATIENT
  Age: 4 Year
  Sex: Female

DRUGS (19)
  1. DEXAMETHASONE SODIUM PHOSPHATE [Suspect]
     Active Substance: DEXAMETHASONE SODIUM PHOSPHATE
     Indication: T-cell type acute leukaemia
     Dosage: FOR 5 DAYS
     Dates: start: 202010
  2. DEXAMETHASONE SODIUM PHOSPHATE [Suspect]
     Active Substance: DEXAMETHASONE SODIUM PHOSPHATE
     Dosage: FOR 5 DAYS
     Dates: start: 202011
  3. CYCLOPHOSPHAMIDE [Suspect]
     Active Substance: CYCLOPHOSPHAMIDE
     Indication: T-cell type acute leukaemia
     Dates: start: 202011
  4. CYTARABINE [Suspect]
     Active Substance: CYTARABINE
     Indication: T-cell type acute leukaemia
     Dosage: FOR 5 DAYS
     Dates: start: 202010
  5. CYTARABINE [Suspect]
     Active Substance: CYTARABINE
     Dosage: FOR 5 DAYS
     Dates: start: 202011
  6. DAUNORUBICIN [Suspect]
     Active Substance: DAUNORUBICIN
     Indication: T-cell type acute leukaemia
     Dosage: FOR 5 DAYS
     Dates: start: 202010
  7. DAUNORUBICIN [Suspect]
     Active Substance: DAUNORUBICIN
     Dosage: FOR 5 DAYS
     Dates: start: 202011
  8. ETOPOSIDE [Suspect]
     Active Substance: ETOPOSIDE
     Indication: T-cell type acute leukaemia
     Dates: start: 202011
  9. METHOTREXATE [Suspect]
     Active Substance: METHOTREXATE
     Indication: T-cell type acute leukaemia
     Dates: start: 202010
  10. METHOTREXATE [Suspect]
     Active Substance: METHOTREXATE
     Dosage: HIGH DOSE
     Dates: start: 202011
  11. PEGASPARGASE [Suspect]
     Active Substance: PEGASPARGASE
     Indication: T-cell type acute leukaemia
     Dosage: FOR 5 DAYS
     Dates: start: 202010
  12. PEGASPARGASE [Suspect]
     Active Substance: PEGASPARGASE
     Dosage: FOR 5 DAYS
     Dates: start: 202011
  13. PREDNISOLONE [Suspect]
     Active Substance: PREDNISOLONE
     Indication: T-cell type acute leukaemia
     Dosage: FOR 5 DAYS
     Dates: start: 202010
  14. PREDNISOLONE [Suspect]
     Active Substance: PREDNISOLONE
     Dosage: FOR 5 DAYS
     Dates: start: 202011
  15. HYDROCORTISONE [Suspect]
     Active Substance: HYDROCORTISONE
     Indication: T-cell type acute leukaemia
     Dates: start: 202010
  16. HYDROCORTISONE [Suspect]
     Active Substance: HYDROCORTISONE
     Dates: start: 202011
  17. VINCRISTINE [Suspect]
     Active Substance: VINCRISTINE
     Indication: T-cell type acute leukaemia
     Dates: start: 202010
  18. VINCRISTINE [Suspect]
     Active Substance: VINCRISTINE
     Dates: start: 202011
  19. GRANULOCYTE COLONY-STIMULATING FACTOR NOS [Suspect]
     Active Substance: GRANULOCYTE COLONY-STIMULATING FACTOR NOS
     Indication: T-cell type acute leukaemia
     Dates: start: 202011

REACTIONS (4)
  - Mucosal inflammation [Recovered/Resolved]
  - Neutropenia [Recovered/Resolved]
  - Bacteraemia [Recovered/Resolved]
  - Pyrexia [Recovered/Resolved]
